FAERS Safety Report 5201056-9 (Version None)
Quarter: 2007Q1

REPORT INFORMATION
  Report Type: 
  Country: None (occurrence: None)
  Receive Date: 20070103
  Receipt Date: 20061219
  Transmission Date: 20070707
  Serious: Yes (Life-Threatening)
  Sender: FDA-Public Use
  Company Number: 2006BH015221

PATIENT
  Age: 85 Year
  Sex: Female

DRUGS (1)
  1. ADENOSINE [Suspect]
     Indication: DRUG USE FOR UNKNOWN INDICATION
     Dosage: 6 MG; IV
     Route: 042

REACTIONS (4)
  - ATRIAL FLUTTER [None]
  - ATRIOVENTRICULAR BLOCK [None]
  - CARDIAC ARREST [None]
  - VENTRICULAR TACHYCARDIA [None]
